FAERS Safety Report 4497567-4 (Version None)
Quarter: 2004Q4

REPORT INFORMATION
  Report Type: 
  Country: None (occurrence: None)
  Receive Date: 20041108
  Receipt Date: 20041025
  Transmission Date: 20050328
  Serious: Yes (Death)
  Sender: FDA-Public Use
  Company Number: US-JNJFOC-20041007520

PATIENT
  Sex: Female

DRUGS (1)
  1. DURAGESIC [Suspect]
     Indication: CANCER PAIN
     Route: 062
     Dates: start: 20030101, end: 20030101

REACTIONS (2)
  - MALIGNANT NEOPLASM PROGRESSION [None]
  - THERAPEUTIC RESPONSE DECREASED [None]
